FAERS Safety Report 8788093 (Version 3)
Quarter: 2015Q2

REPORT INFORMATION
  Report Type: Report from Study
  Country: US (occurrence: US)
  Receive Date: 20120914
  Receipt Date: 20150413
  Transmission Date: 20150821
  Serious: Yes (Death, Other)
  Sender: FDA-Public Use
  Company Number: US-ROCHE-1127077

PATIENT
  Sex: Male

DRUGS (6)
  1. ARANESP [Concomitant]
     Active Substance: DARBEPOETIN ALFA
     Route: 058
  2. ALOXI [Concomitant]
     Active Substance: PALONOSETRON HYDROCHLORIDE
     Route: 042
  3. AVASTIN [Suspect]
     Active Substance: BEVACIZUMAB
     Indication: PANCREATIC CARCINOMA
     Route: 042
     Dates: start: 20070531
  4. DECADRON [Concomitant]
     Active Substance: DEXAMETHASONE
     Route: 042
  5. 5-FLUOROURACIL [Concomitant]
     Active Substance: FLUOROURACIL
     Route: 042
  6. GEMZAR [Concomitant]
     Active Substance: GEMCITABINE HYDROCHLORIDE
     Route: 042

REACTIONS (7)
  - Weight decreased [Unknown]
  - Jaundice [Unknown]
  - Back pain [Unknown]
  - Gait disturbance [Unknown]
  - No therapeutic response [Unknown]
  - Disease progression [Fatal]
  - Off label use [Unknown]
